FAERS Safety Report 15488702 (Version 2)
Quarter: 2018Q4

REPORT INFORMATION
  Report Type: Spontaneous
  Country: FR (occurrence: FR)
  Receive Date: 20181011
  Receipt Date: 20181026
  Transmission Date: 20190205
  Serious: Yes (Death)
  Sender: FDA-Public Use
  Company Number: FR-SAKK-2018SA277776AA

PATIENT
  Age: 82 Year
  Sex: Male
  Weight: 79 kg

DRUGS (3)
  1. LOVENOX [Suspect]
     Active Substance: ENOXAPARIN SODIUM
     Indication: ATRIAL FIBRILLATION
     Dosage: 14000 IU, QD
     Route: 058
     Dates: start: 20180713, end: 20180717
  2. INNOHEP [Suspect]
     Active Substance: TINZAPARIN SODIUM
     Indication: ATRIAL FIBRILLATION
     Dosage: 1 DF, QD
     Route: 058
     Dates: start: 20180718, end: 20180726
  3. LOVENOX [Suspect]
     Active Substance: ENOXAPARIN SODIUM
     Dosage: 2 DF, QD
     Route: 058
     Dates: start: 20180726, end: 20180727

REACTIONS (2)
  - Haematoma [Fatal]
  - Shock haemorrhagic [Fatal]

NARRATIVE: CASE EVENT DATE: 20180726
